APPROVED DRUG PRODUCT: JUNIOR STRENGTH MOTRIN
Active Ingredient: IBUPROFEN
Strength: 100MG
Dosage Form/Route: TABLET;ORAL
Application: N020602 | Product #001
Applicant: KENVUE BRANDS LLC
Approved: Jun 10, 1996 | RLD: No | RS: No | Type: OTC